FAERS Safety Report 14314592 (Version 1)
Quarter: 2017Q4

REPORT INFORMATION
  Report Type: Spontaneous
  Country: US (occurrence: US)
  Receive Date: 20171221
  Receipt Date: 20171221
  Transmission Date: 20180321
  Serious: Yes (Hospitalization)
  Sender: FDA-Public Use
  Company Number: US-VIFOR (INTERNATIONAL) INC.-VIT-2017-13966

PATIENT
  Age: 35 Year
  Sex: Male

DRUGS (15)
  1. VELTASSA [Suspect]
     Active Substance: PATIROMER
     Indication: HYPERKALAEMIA
     Route: 048
     Dates: start: 20170628
  2. BACLOFEN. [Concomitant]
     Active Substance: BACLOFEN
  3. GABAPENTIN. [Concomitant]
     Active Substance: GABAPENTIN
  4. ASCORBIC ACID~~PYRIDOXINE HYDROCHLORIDE~~TOCOPHERYL ACETATE~~THIAMINE HYDROCHLORIDE~~COLECALCIFEROL~ [Concomitant]
  5. NOVOLOG MIX 70/30 [Concomitant]
     Active Substance: INSULIN ASPART
  6. PERCOCET [Concomitant]
     Active Substance: ACETAMINOPHEN\OXYCODONE HYDROCHLORIDE
  7. DULOXETINE HYDROCHLORIDE. [Concomitant]
     Active Substance: DULOXETINE HYDROCHLORIDE
  8. METOCLOPRAMIDE HYDROCHLORIDE. [Concomitant]
     Active Substance: METOCLOPRAMIDE HYDROCHLORIDE
  9. METOPROLOL SUCCINATE ER [Concomitant]
     Active Substance: METOPROLOL SUCCINATE
  10. SODIUM BICARBONATE. [Concomitant]
     Active Substance: SODIUM BICARBONATE
  11. AMLODIPINE BESILATE [Concomitant]
     Active Substance: AMLODIPINE BESYLATE
  12. TAMSULOSIN HYDROCHLORIDE. [Concomitant]
     Active Substance: TAMSULOSIN HYDROCHLORIDE
  13. FERROUS SULFATE. [Concomitant]
     Active Substance: FERROUS SULFATE
  14. LACTULOSE. [Concomitant]
     Active Substance: LACTULOSE
  15. OMEPRAZOLE. [Concomitant]
     Active Substance: OMEPRAZOLE

REACTIONS (1)
  - Cellulitis [Unknown]

NARRATIVE: CASE EVENT DATE: 20171122
